FAERS Safety Report 5663710-4 (Version None)
Quarter: 2008Q1

REPORT INFORMATION
  Report Type: 
  Country: None (occurrence: None)
  Receive Date: 20080310
  Receipt Date: 20080303
  Transmission Date: 20080703
  Serious: Yes (Other)
  Sender: FDA-Public Use
  Company Number: B0511186A

PATIENT
  Sex: 0

DRUGS (2)
  1. FLUTICASONE PROPIONATE [Suspect]
     Dosage: INHALED
     Route: 055
  2. ATAZANAVIR (FORMULATION UNKNOWN) (ATAZANAVIR) [Suspect]

REACTIONS (4)
  - CONDITION AGGRAVATED [None]
  - CUSHING'S SYNDROME [None]
  - DRUG INTERACTION [None]
  - KAPOSI'S SARCOMA [None]
